FAERS Safety Report 8736470 (Version 8)
Quarter: 2016Q1

REPORT INFORMATION
  Report Type: Spontaneous
  Country: US (occurrence: US)
  Receive Date: 20120822
  Receipt Date: 20160204
  Transmission Date: 20160526
  Serious: Yes (Other)
  Sender: FDA-Public Use
  Company Number: US-PFIZER INC-2012204674

PATIENT
  Age: 64 Year
  Sex: Female
  Weight: 74 kg

DRUGS (14)
  1. ALPRAZOLAM. [Concomitant]
     Active Substance: ALPRAZOLAM
     Indication: ANXIETY
     Dosage: 1MG, EVERY 6 HOURS, AS NEEDED
  2. ALPRAZOLAM. [Concomitant]
     Active Substance: ALPRAZOLAM
     Dosage: 1 MG, 3X/DAY
     Dates: start: 1988
  3. NEURONTIN [Concomitant]
     Active Substance: GABAPENTIN
     Indication: NEURALGIA
     Dosage: 100 MG, 2X/DAY
     Dates: start: 2012
  4. CLONAZEPAM. [Concomitant]
     Active Substance: CLONAZEPAM
     Indication: ANXIETY
     Dosage: 1 MG, 3X/DAY
     Dates: start: 1988
  5. LYRICA [Concomitant]
     Active Substance: PREGABALIN
     Indication: SEIZURE
  6. SERTRALINE HCL [Suspect]
     Active Substance: SERTRALINE HYDROCHLORIDE
     Indication: DEPRESSION
     Dosage: 100 MG, 1X/DAY
     Route: 048
     Dates: end: 2012
  7. NEURONTIN [Concomitant]
     Active Substance: GABAPENTIN
     Indication: SEIZURE
  8. CHLORPROMAZINE. [Concomitant]
     Active Substance: CHLORPROMAZINE
     Indication: DEPRESSION
  9. SERTRALINE HCL [Suspect]
     Active Substance: SERTRALINE HYDROCHLORIDE
     Indication: MAJOR DEPRESSION
     Dosage: 200 MG, 1X/DAY (ONCE IN AM)
     Route: 048
     Dates: start: 2010, end: 2011
  10. ZOLOFT [Suspect]
     Active Substance: SERTRALINE HYDROCHLORIDE
     Indication: DEPRESSION
  11. ZOLOFT [Suspect]
     Active Substance: SERTRALINE HYDROCHLORIDE
     Indication: MAJOR DEPRESSION
     Dosage: 200 MG, 1X/DAY (ONCE IN AM)
     Route: 048
     Dates: start: 1996, end: 2015
  12. CHLORPROMAZINE. [Concomitant]
     Active Substance: CHLORPROMAZINE
     Indication: ANXIETY
     Dosage: 125 MG, UNK
     Dates: start: 1988
  13. LYRICA [Concomitant]
     Active Substance: PREGABALIN
     Indication: FIBROMYALGIA
     Dosage: 50 MG, 2X/DAY
     Dates: start: 2012
  14. LYRICA [Concomitant]
     Active Substance: PREGABALIN
     Indication: NEURALGIA

REACTIONS (11)
  - Suicidal ideation [Unknown]
  - Spinal osteoarthritis [Not Recovered/Not Resolved]
  - Body height decreased [Not Recovered/Not Resolved]
  - Cough [Not Recovered/Not Resolved]
  - Drug ineffective [Unknown]
  - Respiratory tract congestion [Not Recovered/Not Resolved]
  - Nasal congestion [Not Recovered/Not Resolved]
  - Depression [Not Recovered/Not Resolved]
  - Nasopharyngitis [Not Recovered/Not Resolved]
  - Inflammation [Not Recovered/Not Resolved]
  - Spinal column stenosis [Not Recovered/Not Resolved]

NARRATIVE: CASE EVENT DATE: 2012
